FAERS Safety Report 15741907 (Version 1)
Quarter: 2018Q4

REPORT INFORMATION
  Report Type: Spontaneous
  Country: US (occurrence: US)
  Receive Date: 20181219
  Receipt Date: 20181219
  Transmission Date: 20190205
  Serious: Yes (Hospitalization)
  Sender: FDA-Public Use
  Company Number: US-VERTEX PHARMACEUTICALS-2018-009688

PATIENT
  Age: 5 Year
  Sex: Male

DRUGS (8)
  1. POLYETHYLENE GLYCOL [Concomitant]
     Active Substance: POLYETHYLENE GLYCOLS
  2. VENTOLIN HFA [Concomitant]
     Active Substance: ALBUTEROL SULFATE
  3. PULMOZYME [Concomitant]
     Active Substance: DORNASE ALFA
  4. FLUOXETINE [Concomitant]
     Active Substance: FLUOXETINE HYDROCHLORIDE
  5. ORKAMBI [Suspect]
     Active Substance: IVACAFTOR\LUMACAFTOR
     Indication: CYSTIC FIBROSIS
     Dosage: 1 PACKET, EVERY 12 HOURS
     Route: 048
     Dates: start: 20181004
  6. PREVACID [Concomitant]
     Active Substance: LANSOPRAZOLE
  7. HYPERSAL [Concomitant]
  8. LORATADINE. [Concomitant]
     Active Substance: LORATADINE

REACTIONS (1)
  - Tonsillectomy [Unknown]

NARRATIVE: CASE EVENT DATE: 20181129
